APPROVED DRUG PRODUCT: FOSAMAX
Active Ingredient: ALENDRONATE SODIUM
Strength: EQ 70MG BASE
Dosage Form/Route: TABLET;ORAL
Application: N020560 | Product #005 | TE Code: AB
Applicant: ORGANON LLC A SUB OF ORGANON AND CO
Approved: Oct 20, 2000 | RLD: Yes | RS: Yes | Type: RX